FAERS Safety Report 10052963 (Version 1)
Quarter: 2014Q2

REPORT INFORMATION
  Report Type: Spontaneous
  Country: US (occurrence: US)
  Receive Date: 20140402
  Receipt Date: 20140402
  Transmission Date: 20141212
  Serious: No
  Sender: FDA-Public Use
  Company Number: US-MALLINCKRODT-T201401473

PATIENT
  Age: 10 Year
  Sex: Male

DRUGS (3)
  1. METHYLPHENIDATE HYDROCHLORIDE EXTENDED RELEASE TABLETS [Suspect]
     Indication: ATTENTION DEFICIT/HYPERACTIVITY DISORDER
     Dosage: 27 MG, QD, AM
     Route: 048
     Dates: start: 20140221
  2. METHYLPHENIDATE - SLOW RELEASE [Concomitant]
     Indication: ATTENTION DEFICIT/HYPERACTIVITY DISORDER
     Dosage: 27 MG, QD
     Route: 048
     Dates: start: 201312, end: 20140220
  3. METHYLPHENIDATE - SLOW RELEASE [Concomitant]
     Dosage: 18 MG, UNK
     Dates: start: 201311, end: 201312

REACTIONS (4)
  - Logorrhoea [Not Recovered/Not Resolved]
  - Fatigue [Not Recovered/Not Resolved]
  - Feeling jittery [Not Recovered/Not Resolved]
  - Drug effect decreased [Not Recovered/Not Resolved]
